FAERS Safety Report 6632356-3 (Version None)
Quarter: 2010Q1

REPORT INFORMATION
  Report Type: 
  Country: None (occurrence: None)
  Receive Date: 20100310
  Receipt Date: 20100222
  Transmission Date: 20100710
  Serious: Yes (Death)
  Sender: FDA-Public Use
  Company Number: AE-2010-032

PATIENT
  Age: 60 Year
  Sex: Male

DRUGS (8)
  1. FAZACLO ODT [Suspect]
     Indication: SCHIZOPHRENIA
     Dosage: 50-250MG DAILY PO
     Route: 048
     Dates: start: 20090518, end: 20091216
  2. MORPHINE [Concomitant]
  3. LITHIUM [Concomitant]
  4. HALDOL [Concomitant]
  5. OLANZAPINE [Concomitant]
  6. HYDROCODONE [Concomitant]
  7. ENOXAPARIN SODIUM [Concomitant]
  8. FLUMAZENIL INJECTION [Concomitant]

REACTIONS (1)
  - ADENOSQUAMOUS CELL LUNG CANCER STAGE IV [None]
